FAERS Safety Report 13099046 (Version 1)
Quarter: 2017Q1

REPORT INFORMATION
  Report Type: Spontaneous
  Country: US (occurrence: US)
  Receive Date: 20170109
  Receipt Date: 20170109
  Transmission Date: 20170428
  Serious: Yes (Other)
  Sender: FDA-Public Use
  Company Number: US-FRESENIUS KABI-FK201700012

PATIENT
  Age: 5 Year
  Sex: Female

DRUGS (2)
  1. LETROZOLE (MANUFACTURER UNKNOWN) [Suspect]
     Active Substance: LETROZOLE
     Indication: ALBRIGHT^S DISEASE
     Route: 065
  2. LEUPROLIDE [Concomitant]
     Active Substance: LEUPROLIDE
     Indication: PRODUCT USED FOR UNKNOWN INDICATION

REACTIONS (1)
  - Adnexal torsion [Unknown]
